FAERS Safety Report 9349538 (Version 1)
Quarter: 2013Q2

REPORT INFORMATION
  Report Type: Spontaneous
  Country: GB (occurrence: None)
  Receive Date: 20130611
  Receipt Date: 20130611
  Transmission Date: 20140414
  Serious: Yes (Other)
  Sender: FDA-Public Use
  Company Number: GER/UKI/13/0029930

PATIENT
  Age: 70 Year
  Sex: Male
  Weight: 72.5 kg

DRUGS (5)
  1. ATORVASTATIN (ATORVASTATIN) [Suspect]
     Indication: LOW DENSITY LIPOPROTEIN INCREASED
     Dosage: 10MG, 1 IN 1 D, ORAL
     Route: 048
     Dates: start: 20130317, end: 20130517
  2. SIMVASTATIN (SIMVASTATIN) [Suspect]
     Indication: LOW DENSITY LIPOPROTEIN INCREASED
     Dosage: 20MG, 1 IN 1D, ORAL
     Route: 048
     Dates: start: 20120928, end: 20130317
  3. AMLODIPINE (AMLODIPINE) [Concomitant]
  4. DIXAZOSIN (DOXAZOSIN MESILATE) [Concomitant]
  5. OMEPRAZOLE (OMEPRAZOLE) [Concomitant]

REACTIONS (8)
  - Contusion [None]
  - Myalgia [None]
  - Neck pain [None]
  - Neuralgia [None]
  - Muscle spasms [None]
  - Pain in extremity [None]
  - Pain in extremity [None]
  - Pain in extremity [None]
